FAERS Safety Report 7571312-8 (Version None)
Quarter: 2011Q2

REPORT INFORMATION
  Report Type: 
  Country: None (occurrence: None)
  Receive Date: 20110624
  Receipt Date: 20110618
  Transmission Date: 20111010
  Serious: Yes (Death)
  Sender: FDA-Public Use
  Company Number: A0932637A

PATIENT
  Age: 62 Year
  Sex: Male

DRUGS (1)
  1. TYKERB [Suspect]
     Dosage: 1250MG UNKNOWN

REACTIONS (1)
  - DEATH [None]
